FAERS Safety Report 5297468-8 (Version None)
Quarter: 2007Q2

REPORT INFORMATION
  Report Type: 
  Country: None (occurrence: None)
  Receive Date: 20070406
  Receipt Date: 20070327
  Transmission Date: 20071010
  Serious: No
  Sender: FDA-Public Use
  Company Number: 2007-152535-NL

PATIENT
  Age: 40 Year
  Sex: Male

DRUGS (5)
  1. MIRTAZAPINE [Suspect]
     Dosage: 30 MG QD
     Dates: start: 20060203, end: 20060304
  2. ATORVASTATIN CALCIUM [Suspect]
     Dosage: 10 MG QD
     Dates: start: 20060107, end: 20060304
  3. VENLAFAXIINE HCL [Suspect]
     Dosage: {1 YEAR
     Dates: start: 20060101, end: 20060101
  4. QUETIAPINE FUMARATE [Concomitant]
  5. GABAPENTIN [Concomitant]

REACTIONS (8)
  - DIARRHOEA [None]
  - DIZZINESS [None]
  - HEPATITIS [None]
  - HYPERHIDROSIS [None]
  - NAUSEA [None]
  - PALLOR [None]
  - PRESYNCOPE [None]
  - SYNCOPE [None]
